FAERS Safety Report 4345184-9 (Version None)
Quarter: 2004Q2

REPORT INFORMATION
  Report Type: 
  Country: None (occurrence: None)
  Receive Date: 20040420
  Receipt Date: 20040408
  Transmission Date: 20050107
  Serious: Yes (Other)
  Sender: FDA-Public Use
  Company Number: US-SHR-04-023796

PATIENT
  Age: 33 Year
  Sex: Female

DRUGS (1)
  1. YASMIN [Suspect]
     Indication: ORAL CONTRACEPTION
     Dosage: 1 TAB (S), 1X/DAY, ORAL
     Route: 048
     Dates: start: 20040101, end: 20040101

REACTIONS (7)
  - ABDOMINAL DISTENSION [None]
  - AMENORRHOEA [None]
  - FATIGUE [None]
  - FEELING ABNORMAL [None]
  - HEPATITIS ALCOHOLIC [None]
  - MOOD SWINGS [None]
  - PANCREATIC ENZYMES INCREASED [None]
